FAERS Safety Report 24123956 (Version 1)
Quarter: 2024Q3

REPORT INFORMATION
  Report Type: Spontaneous
  Country: US (occurrence: US)
  Receive Date: 20240723
  Receipt Date: 20240723
  Transmission Date: 20241016
  Serious: Yes (Hospitalization)
  Sender: OTSUKA
  Company Number: US-OTSUKA-2024_014586

PATIENT
  Age: 48 Year
  Sex: Female
  Weight: 92 kg

DRUGS (3)
  1. REXULTI [Suspect]
     Active Substance: BREXPIPRAZOLE
     Indication: Product used for unknown indication
     Dosage: 2 MG
     Route: 065
     Dates: start: 20240517, end: 20240521
  2. REXULTI [Suspect]
     Active Substance: BREXPIPRAZOLE
     Dosage: 2 MG
     Route: 065
     Dates: start: 202404, end: 202405
  3. REXULTI [Suspect]
     Active Substance: BREXPIPRAZOLE
     Dosage: 1 MG
     Route: 065
     Dates: start: 20240409

REACTIONS (5)
  - Nasopharyngitis [Recovered/Resolved]
  - Influenza like illness [Recovered/Resolved]
  - Depression [Unknown]
  - Anxiety [Unknown]
  - Akathisia [Recovered/Resolved]

NARRATIVE: CASE EVENT DATE: 20240518
